FAERS Safety Report 5162246-7 (Version None)
Quarter: 2006Q4

REPORT INFORMATION
  Report Type: 
  Country: None (occurrence: None)
  Receive Date: 20061121
  Receipt Date: 20061110
  Transmission Date: 20070319
  Serious: Yes (Other)
  Sender: FDA-Public Use
  Company Number: 2006SP006255

PATIENT
  Age: 5 Year
  Sex: Male
  Weight: 25.4014 kg

DRUGS (3)
  1. CLARITIN [Suspect]
     Indication: RHINITIS ALLERGIC
     Dosage: ONCE; PO
     Route: 048
     Dates: start: 20061109, end: 20061109
  2. OMEGA OIL [Concomitant]
  3. VITAMINS [Concomitant]

REACTIONS (2)
  - HALLUCINATION, VISUAL [None]
  - SCREAMING [None]
